FAERS Safety Report 7952117-2 (Version None)
Quarter: 2011Q4

REPORT INFORMATION
  Report Type: 
  Country: None (occurrence: None)
  Receive Date: 20111201
  Receipt Date: 20111124
  Transmission Date: 20120403
  Serious: Yes (Hospitalization, Other)
  Sender: FDA-Public Use
  Company Number: PHHY2011DE103532

PATIENT
  Age: 61 Year
  Sex: Female

DRUGS (2)
  1. ZOMETA [Suspect]
     Indication: METASTASES TO BONE
  2. FEMARA [Suspect]
     Indication: BREAST CANCER

REACTIONS (9)
  - RELAPSING FEVER [None]
  - DRY MOUTH [None]
  - BONE PAIN [None]
  - PANCYTOPENIA [None]
  - MENINGEAL DISORDER [None]
  - MYALGIA [None]
  - PARAESTHESIA [None]
  - MYELOFIBROSIS [None]
  - SPLENOMEGALY [None]
